FAERS Safety Report 16448471 (Version 2)
Quarter: 2019Q2

REPORT INFORMATION
  Report Type: Spontaneous
  Country: US (occurrence: US)
  Receive Date: 20190619
  Receipt Date: 20190626
  Transmission Date: 20190711
  Serious: Yes (Other)
  Sender: FDA-Public Use
  Company Number: US-SA-2019SA163628

PATIENT
  Age: 56 Year
  Sex: Male

DRUGS (5)
  1. TACROLIMUS. [Concomitant]
     Active Substance: TACROLIMUS
  2. THYMOGLOBULIN [Suspect]
     Active Substance: LAPINE T-LYMPHOCYTE IMMUNE GLOBULIN
     Dosage: UNK
     Route: 042
     Dates: start: 20190218
  3. THYMOGLOBULIN [Suspect]
     Active Substance: LAPINE T-LYMPHOCYTE IMMUNE GLOBULIN
     Dosage: UNK
     Route: 042
     Dates: start: 20190221
  4. THYMOGLOBULIN [Suspect]
     Active Substance: LAPINE T-LYMPHOCYTE IMMUNE GLOBULIN
     Indication: PROPHYLAXIS AGAINST TRANSPLANT REJECTION
     Dosage: 4.5 MG/KG
     Route: 042
     Dates: start: 20190215
  5. THYMOGLOBULIN [Suspect]
     Active Substance: LAPINE T-LYMPHOCYTE IMMUNE GLOBULIN
     Dosage: UNK
     Route: 042
     Dates: start: 20190222

REACTIONS (1)
  - Transplant rejection [Recovering/Resolving]

NARRATIVE: CASE EVENT DATE: 20190305
